FAERS Safety Report 7374789-6 (Version None)
Quarter: 2011Q1

REPORT INFORMATION
  Report Type: 
  Country: None (occurrence: None)
  Receive Date: 20110325
  Receipt Date: 20101130
  Transmission Date: 20110831
  Serious: No
  Sender: FDA-Public Use
  Company Number: US-MYLANLABS-2010S1020826

PATIENT
  Age: 52 Year
  Sex: Male

DRUGS (5)
  1. FENTANYL-100 [Suspect]
     Dosage: CHANGED Q 72H
     Route: 062
     Dates: start: 20101101, end: 20101101
  2. FENTANYL-100 [Suspect]
     Dosage: CHANGED Q 48H
     Route: 062
     Dates: start: 20101101
  3. FENTANYL-100 [Suspect]
     Indication: PAIN
     Dosage: CHANGED Q 72 H
     Route: 062
     Dates: start: 20100901, end: 20101101
  4. KLONOPIN [Concomitant]
  5. KM [Concomitant]
     Dosage: HERBAL SUPPLEMENT
     Dates: end: 20101001

REACTIONS (2)
  - DRUG EFFECT DECREASED [None]
  - DRUG WITHDRAWAL SYNDROME [None]
